FAERS Safety Report 8150811-4 (Version None)
Quarter: 2012Q1

REPORT INFORMATION
  Report Type: 
  Country: None (occurrence: None)
  Receive Date: 20120220
  Receipt Date: 20120215
  Transmission Date: 20120608
  Serious: Yes (Other)
  Sender: FDA-Public Use
  Company Number: US-PFIZER INC-2012042050

PATIENT
  Sex: Male

DRUGS (1)
  1. PROCARDIA XL [Suspect]
     Dosage: 60 MG, 1X/DAY

REACTIONS (1)
  - LEG AMPUTATION [None]
